FAERS Safety Report 5409384-9 (Version None)
Quarter: 2007Q3

REPORT INFORMATION
  Report Type: 
  Country: None (occurrence: None)
  Receive Date: 20070808
  Receipt Date: 20070808
  Transmission Date: 20080115
  Serious: Yes (Hospitalization)
  Sender: FDA-Public Use
  Company Number: None

PATIENT
  Age: 90 Year
  Sex: Male

DRUGS (1)
  1. ATENOLOL [Suspect]
     Dosage: 50MG EVERY DAY PO
     Route: 048
     Dates: start: 20030418, end: 20070802

REACTIONS (2)
  - FALL [None]
  - SYNCOPE [None]
